FAERS Safety Report 6839413-7 (Version None)
Quarter: 2010Q3

REPORT INFORMATION
  Report Type: 
  Country: None (occurrence: None)
  Receive Date: 20100714
  Receipt Date: 20100707
  Transmission Date: 20110219
  Serious: Yes (Disabling)
  Sender: FDA-Public Use
  Company Number: US-BAYER-201027329NA

PATIENT
  Age: 51 Year
  Sex: Female

DRUGS (3)
  1. CIPRO XR [Suspect]
     Indication: CYSTITIS
     Dosage: TOTAL DAILY DOSE: 1000 MG
     Route: 048
     Dates: start: 20100417, end: 20100420
  2. IBUPROFEN [Concomitant]
  3. MULTI-VITAMINS [Concomitant]

REACTIONS (4)
  - ABASIA [None]
  - JOINT RANGE OF MOTION DECREASED [None]
  - MYALGIA [None]
  - SENSORY DISTURBANCE [None]
